FAERS Safety Report 5927927-3 (Version None)
Quarter: 2008Q4

REPORT INFORMATION
  Report Type: 
  Country: None (occurrence: None)
  Receive Date: 20081017
  Receipt Date: 20081006
  Transmission Date: 20090506
  Serious: Yes (Hospitalization)
  Sender: FDA-Public Use
  Company Number: AZAUS200800347

PATIENT
  Age: 70 Year
  Sex: Male
  Weight: 87 kg

DRUGS (1)
  1. VIDAZA [Suspect]
     Indication: MYELODYSPLASTIC SYNDROME
     Dosage: (75 MG/M2, 5-2-2 REGIMEN), SUBCUTANEOUS
     Route: 058
     Dates: start: 20080825, end: 20080903

REACTIONS (3)
  - ERYTHEMA [None]
  - NECROSIS [None]
  - PAIN IN EXTREMITY [None]
